FAERS Safety Report 18204952 (Version 1)
Quarter: 2020Q3

REPORT INFORMATION
  Report Type: Spontaneous
  Country: KR (occurrence: KR)
  Receive Date: 20200828
  Receipt Date: 20200828
  Transmission Date: 20201103
  Serious: Yes (Other)
  Sender: FDA-Public Use
  Company Number: KR-BRISTOL-MYERS SQUIBB COMPANY-BMS-2020-068211

PATIENT
  Age: 70 Year
  Sex: Male

DRUGS (1)
  1. WARFARIN SODIUM. [Suspect]
     Active Substance: WARFARIN SODIUM
     Indication: AORTIC VALVE REPLACEMENT
     Dosage: UNK
     Route: 065

REACTIONS (2)
  - Posthaemorrhagic hydrocephalus [Unknown]
  - Cerebral haemorrhage [Unknown]
